FAERS Safety Report 6836056-6 (Version None)
Quarter: 2010Q3

REPORT INFORMATION
  Report Type: 
  Country: None (occurrence: None)
  Receive Date: 20100713
  Receipt Date: 20100701
  Transmission Date: 20110219
  Serious: Yes (Death, Other)
  Sender: FDA-Public Use
  Company Number: RO-GENZYME-CLOF-1000961

PATIENT
  Sex: Male
  Weight: 82 kg

DRUGS (7)
  1. EVOLTRA [Suspect]
     Indication: ACUTE MYELOID LEUKAEMIA
     Dosage: 50 MG, QD
     Route: 042
     Dates: start: 20100330, end: 20100403
  2. TAZOCIN [Concomitant]
     Indication: FEBRILE NEUTROPENIA
     Dosage: 4.5 G, QDX3
  3. METRONIDAZOLE [Concomitant]
     Indication: FEBRILE NEUTROPENIA
     Dosage: 1 G, BID
     Dates: start: 20100402, end: 20100412
  4. VFEND [Concomitant]
     Indication: FEBRILE NEUTROPENIA
     Dosage: 200 UNK, BID
     Dates: start: 20100408, end: 20100412
  5. RANITIDINE [Concomitant]
     Indication: THROMBOCYTOPENIA
     Dosage: 1 UNK, BID
     Dates: start: 20100412, end: 20100412
  6. DEXAMETHASONE [Concomitant]
     Indication: THROMBOCYTOPENIA
     Dosage: 40 MG, UNK
     Dates: start: 20100330, end: 20100412
  7. CYTARABINE [Suspect]
     Indication: ACUTE MYELOID LEUKAEMIA
     Dosage: 35 MG, QD
     Route: 042
     Dates: start: 20100303, end: 20100405

REACTIONS (3)
  - FEBRILE NEUTROPENIA [None]
  - RECTAL HAEMORRHAGE [None]
  - THROMBOCYTOPENIA [None]
